FAERS Safety Report 18807006 (Version 1)
Quarter: 2021Q1

REPORT INFORMATION
  Report Type: Spontaneous
  Country: US (occurrence: US)
  Receive Date: 20210128
  Receipt Date: 20210128
  Transmission Date: 20210419
  Serious: No
  Sender: FDA-Public Use
  Company Number: None

PATIENT
  Age: 85 Year
  Sex: Male
  Weight: 81 kg

DRUGS (18)
  1. CALCITRIOL. [Concomitant]
     Active Substance: CALCITRIOL
  2. ASPIRIN. [Concomitant]
     Active Substance: ASPIRIN
  3. TYLENOL [Concomitant]
     Active Substance: ACETAMINOPHEN
  4. FINASTERIDE. [Concomitant]
     Active Substance: FINASTERIDE
  5. ZYRTEC [Concomitant]
     Active Substance: CETIRIZINE HYDROCHLORIDE
  6. CHOLESTYRAMINE LIGHT [Suspect]
     Active Substance: CHOLESTYRAMINE
     Indication: ABNORMAL FAECES
     Dosage: ?          QUANTITY:1 SCOOP;?
     Route: 048
     Dates: start: 20201228, end: 20210127
  7. SPIRONOLACTONE. [Concomitant]
     Active Substance: SPIRONOLACTONE
  8. ATORVASTATIN [Concomitant]
     Active Substance: ATORVASTATIN
  9. TUMS [Concomitant]
     Active Substance: CALCIUM CARBONATE
  10. LEVOTHYROXINE. [Concomitant]
     Active Substance: LEVOTHYROXINE
  11. FUROSEMIDE. [Concomitant]
     Active Substance: FUROSEMIDE
  12. TAMSULOSIN [Concomitant]
     Active Substance: TAMSULOSIN
  13. IRON SUPPLEMENT [Concomitant]
     Active Substance: IRON
  14. LATANOPROST. [Concomitant]
     Active Substance: LATANOPROST
  15. DIPHENOXYLATE?ATROPINE [Concomitant]
     Active Substance: ATROPINE\DIPHENOXYLATE
  16. CHOLESTYRAMINE. [Concomitant]
     Active Substance: CHOLESTYRAMINE
  17. MULTIVITAMIN [Concomitant]
     Active Substance: VITAMINS
  18. METOPROLOL SUCCINATE ER [Concomitant]
     Active Substance: METOPROLOL SUCCINATE

REACTIONS (2)
  - Product label confusion [None]
  - Product dispensing error [None]

NARRATIVE: CASE EVENT DATE: 20201228
